FAERS Safety Report 5831981-7 (Version None)
Quarter: 2008Q3

REPORT INFORMATION
  Report Type: 
  Country: None (occurrence: None)
  Receive Date: 20080729
  Receipt Date: 20080715
  Transmission Date: 20090109
  Serious: Yes (Life-Threatening, Hospitalization)
  Sender: FDA-Public Use
  Company Number: 2008AP001761

PATIENT
  Age: 91 Year
  Sex: Female

DRUGS (4)
  1. ENALAPRIL MALEATE [Suspect]
     Indication: PULMONARY ARTERIAL HYPERTENSION
     Dosage: 20 MG; QD, 20 MG; QD
  2. FENTANYL [Suspect]
     Indication: ANAESTHESIA
     Dosage: INJECT
  3. MEPIVACAINE HCL [Suspect]
     Indication: ANAESTHESIA
     Dosage: INJECT
  4. MIDAZOLAM HCL [Suspect]
     Indication: ANAESTHESIA
     Dosage: INJECT

REACTIONS (3)
  - ANOXIC ENCEPHALOPATHY [None]
  - DRUG INTERACTION [None]
  - HYPOTENSION [None]
